FAERS Safety Report 7009508-6 (Version None)
Quarter: 2010Q3

REPORT INFORMATION
  Report Type: 
  Country: None (occurrence: None)
  Receive Date: 20100923
  Receipt Date: 20100913
  Transmission Date: 20110219
  Serious: Yes (Hospitalization)
  Sender: FDA-Public Use
  Company Number: PHHY2010US60185

PATIENT
  Sex: Female
  Weight: 19 kg

DRUGS (1)
  1. EXJADE [Suspect]
     Indication: SICKLE CELL ANAEMIA
     Dosage: 625 MG DAILY
     Route: 048
     Dates: start: 20090611, end: 20100823

REACTIONS (1)
  - BONE MARROW TRANSPLANT [None]
